FAERS Safety Report 7378333-9 (Version None)
Quarter: 2011Q1

REPORT INFORMATION
  Report Type: 
  Country: None (occurrence: None)
  Receive Date: 20110328
  Receipt Date: 20110318
  Transmission Date: 20110831
  Serious: Yes (Hospitalization)
  Sender: FDA-Public Use
  Company Number: BR-ASTRAZENECA-2011SE15865

PATIENT
  Age: 489 Month
  Sex: Female

DRUGS (4)
  1. ANAFRANIL [Concomitant]
     Route: 048
     Dates: end: 20110201
  2. SEROQUEL [Suspect]
     Route: 048
     Dates: start: 20110201
  3. SEROQUEL [Suspect]
     Route: 048
     Dates: end: 20110201
  4. ANAFRANIL [Concomitant]
     Route: 048
     Dates: start: 20110201

REACTIONS (2)
  - MENTAL DISORDER [None]
  - INCORRECT DOSE ADMINISTERED [None]
